FAERS Safety Report 7434796-1 (Version None)
Quarter: 2011Q2

REPORT INFORMATION
  Report Type: 
  Country: None (occurrence: None)
  Receive Date: 20110425
  Receipt Date: 20110412
  Transmission Date: 20111010
  Serious: Yes (Hospitalization)
  Sender: FDA-Public Use
  Company Number: US-JNJFOC-20110407229

PATIENT
  Sex: Male
  Weight: 66.6 kg

DRUGS (4)
  1. MERCAPTOPURINE [Concomitant]
  2. REMICADE [Suspect]
     Indication: INFLAMMATORY BOWEL DISEASE
     Route: 042
  3. REMICADE [Suspect]
     Route: 042
  4. ABILIFY [Concomitant]

REACTIONS (1)
  - SUICIDAL IDEATION [None]
